FAERS Safety Report 6596859-2 (Version None)
Quarter: 2010Q1

REPORT INFORMATION
  Report Type: 
  Country: None (occurrence: None)
  Receive Date: 20100222
  Receipt Date: 20100222
  Transmission Date: 20100710
  Serious: No
  Sender: FDA-Public Use
  Company Number: None

PATIENT
  Age: 20 Year
  Sex: Male
  Weight: 72.5755 kg

DRUGS (2)
  1. LEVAQUIN [Suspect]
     Indication: BRONCHITIS
     Dosage: DAILY PO
     Route: 048
     Dates: start: 20091207, end: 20091208
  2. LEVAQUIN [Suspect]
     Indication: SINUSITIS
     Dosage: DAILY PO
     Route: 048
     Dates: start: 20091207, end: 20091208

REACTIONS (8)
  - CRYING [None]
  - DEPRESSION [None]
  - FATIGUE [None]
  - FEELING JITTERY [None]
  - HALLUCINATION, AUDITORY [None]
  - INSOMNIA [None]
  - MENTAL DISORDER [None]
  - PERSONALITY CHANGE [None]
